FAERS Safety Report 14298356 (Version 1)
Quarter: 2017Q4

REPORT INFORMATION
  Report Type: Spontaneous
  Country: TR (occurrence: TR)
  Receive Date: 20171218
  Receipt Date: 20171218
  Transmission Date: 20180321
  Serious: Yes (Hospitalization)
  Sender: FDA-Public Use
  Company Number: TR-ALLERGAN-1772354US

PATIENT
  Sex: Male

DRUGS (1)
  1. FOSFOMYCIN TROMETHAMINE UNK [Suspect]
     Active Substance: FOSFOMYCIN TROMETHAMINE
     Indication: PROPHYLAXIS URINARY TRACT INFECTION
     Dosage: 3G/24H 1 DAY
     Route: 065
     Dates: start: 2014

REACTIONS (2)
  - Drug ineffective [Unknown]
  - Urinary tract infection [Unknown]
